FAERS Safety Report 9373564 (Version 1)
Quarter: 2013Q2

REPORT INFORMATION
  Report Type: Spontaneous
  Country: US (occurrence: US)
  Receive Date: 20130627
  Receipt Date: 20130627
  Transmission Date: 20140414
  Serious: No
  Sender: FDA-Public Use
  Company Number: US-B.I. PHARMACEUTICALS,INC./RIDGEFIELD-2013-BI-18286BP

PATIENT
  Age: 89 Year
  Sex: Female
  Weight: 51 kg

DRUGS (9)
  1. COMBIVENT [Suspect]
     Indication: CHRONIC OBSTRUCTIVE PULMONARY DISEASE
     Dosage: STRENGTH: 20 MCG / 100 MCG; DAILY DOSE: 80 MCG / 400 MCG
     Route: 055
     Dates: start: 20130621, end: 20130623
  2. MULTIPLE VITAMIN [Concomitant]
     Indication: SUPPLEMENTATION THERAPY
     Dosage: (TABLET) STRENGTH: 1 TABLET; DAILY DOSE: 1 TABLET
     Route: 048
     Dates: start: 2007
  3. FUROSEMIDE [Concomitant]
     Indication: URINE OUTPUT DECREASED
     Dosage: 20 MG
     Route: 048
     Dates: start: 2007
  4. CALCIUM WITH VITAMIN D [Concomitant]
     Indication: OSTEOPOROSIS
     Dosage: 1000 MG
     Route: 048
     Dates: start: 2007
  5. TYLENOL EXTRA STRENGTH [Concomitant]
     Indication: HEADACHE
     Dosage: 500 MG
     Route: 048
     Dates: start: 1963
  6. COMBIVENT INHALER [Concomitant]
     Indication: CHRONIC OBSTRUCTIVE PULMONARY DISEASE
     Dosage: FORMULATION: INHALATION SOLUTION, STRENGTH: 18 MCG / 103 MCG;
     Route: 055
     Dates: start: 2000, end: 20130620
  7. TOPROL [Concomitant]
     Indication: ATRIAL FIBRILLATION
     Dosage: 100 MG
     Route: 048
     Dates: start: 2007
  8. COUMADIN [Concomitant]
     Indication: ATRIAL FIBRILLATION
     Dosage: 10 MG
     Route: 048
     Dates: start: 2005
  9. KLOR-CON [Concomitant]
     Indication: BLOOD POTASSIUM DECREASED
     Dosage: 20 MEQ
     Route: 048
     Dates: start: 2007

REACTIONS (2)
  - Rash pruritic [Not Recovered/Not Resolved]
  - Intentional drug misuse [Recovered/Resolved]
